FAERS Safety Report 6957857-X (Version None)
Quarter: 2010Q3

REPORT INFORMATION
  Report Type: 
  Country: None (occurrence: None)
  Receive Date: 20100831
  Receipt Date: 20100826
  Transmission Date: 20110219
  Serious: Yes (Death)
  Sender: FDA-Public Use
  Company Number: US-BAYER-201031519NA

PATIENT
  Age: 38 Year
  Sex: Male

DRUGS (2)
  1. BETASERON [Suspect]
     Indication: MULTIPLE SCLEROSIS
  2. STEROIDS [Concomitant]
     Indication: MULTIPLE SCLEROSIS

REACTIONS (2)
  - ABDOMINAL ADHESIONS [None]
  - BLOOD DISORDER [None]
